FAERS Safety Report 8560775-7 (Version None)
Quarter: 2012Q3

REPORT INFORMATION
  Report Type: 
  Country: None (occurrence: None)
  Receive Date: 20120802
  Receipt Date: 20120719
  Transmission Date: 20120928
  Serious: Yes (Hospitalization)
  Sender: FDA-Public Use
  Company Number: JP-PFIZER INC-2012163953

PATIENT
  Age: 71 Year
  Sex: Female
  Weight: 49.4 kg

DRUGS (3)
  1. ZONISAMIDE [Suspect]
     Indication: CONVULSION PROPHYLAXIS
     Dosage: 200 MG, UNKNOWN/D
     Route: 048
     Dates: start: 20111208, end: 20120110
  2. LIPITOR [Suspect]
     Indication: HYPERCHOLESTEROLAEMIA
     Dosage: 10 MG, UID/QD
     Route: 048
     Dates: start: 20110901, end: 20120119
  3. RIVOTRIL [Concomitant]
     Indication: CONVULSION PROPHYLAXIS
     Dosage: UNK
     Route: 048
     Dates: start: 20110901

REACTIONS (1)
  - DRUG ERUPTION [None]
